FAERS Safety Report 8470275-0 (Version None)
Quarter: 2012Q2

REPORT INFORMATION
  Report Type: 
  Country: None (occurrence: None)
  Receive Date: 20120627
  Receipt Date: 20120621
  Transmission Date: 20120825
  Serious: Yes (Other)
  Sender: FDA-Public Use
  Company Number: BR-US-EMD SERONO, INC.-7133661

PATIENT
  Sex: Female

DRUGS (10)
  1. SINVASTATINE (SIMVASTATIN) [Concomitant]
  2. IBUPROFEN [Concomitant]
     Indication: PRODUCT USED FOR UNKNOWN INDICATION
  3. SINVASTATINE (SIMVASTATIN) [Concomitant]
     Indication: PRODUCT USED FOR UNKNOWN INDICATION
  4. CITONEURIM (CITONEURIN) [Concomitant]
     Indication: PRODUCT USED FOR UNKNOWN INDICATION
  5. REBIF [Suspect]
     Indication: RELAPSING-REMITTING MULTIPLE SCLEROSIS
     Dates: start: 20060807, end: 20120504
  6. SYMBICORT/ ALENIA [Concomitant]
     Indication: ASTHMA
  7. ADDERA D3 (COLECALCIFEROL) [Concomitant]
     Indication: PRODUCT USED FOR UNKNOWN INDICATION
  8. AMPLICTIL [Concomitant]
     Indication: STRESS
  9. REBIF [Suspect]
     Dates: start: 20120504
  10. FLUOXETINE [Concomitant]
     Indication: PRODUCT USED FOR UNKNOWN INDICATION

REACTIONS (8)
  - GINGIVAL ABSCESS [None]
  - TOOTH INJURY [None]
  - MYALGIA [None]
  - NERVOUSNESS [None]
  - SNORING [None]
  - ANXIETY [None]
  - BRUXISM [None]
  - APNOEA [None]
